FAERS Safety Report 5721956-0 (Version None)
Quarter: 2008Q2

REPORT INFORMATION
  Report Type: 
  Country: None (occurrence: None)
  Receive Date: 20080429
  Receipt Date: 20080423
  Transmission Date: 20081010
  Serious: Yes (Hospitalization)
  Sender: FDA-Public Use
  Company Number: US-BOEHRINGER INGELHEIM GMBH, GERMANY-2008-BP-05017BP

PATIENT
  Age: 76 Year
  Sex: Female

DRUGS (27)
  1. SPIRIVA [Suspect]
     Indication: ASTHMA
     Route: 055
  2. PREVACID [Concomitant]
     Indication: STOMACH DISCOMFORT
  3. LOVASTATIN [Concomitant]
     Indication: BLOOD CHOLESTEROL
  4. METOPROLOL TARTRATE [Concomitant]
     Indication: CARDIAC DISORDER
  5. RESTORIL [Concomitant]
     Indication: SLEEP DISORDER
  6. PROAIR HFA [Concomitant]
     Indication: ASTHMA
  7. SINGULAIR [Concomitant]
     Indication: ASTHMA
  8. MULTIVITAMIN/MINERAL [Concomitant]
  9. CALCIUM WITH VITAMIN D, MAGNESIUM, COPPER, ZINC, MANGANESE, BORON [Concomitant]
  10. GLUCOSAMINE WITH CHONDROITIN [Concomitant]
     Indication: PROPHYLAXIS
  11. MEGA LECITHIN [Concomitant]
  12. FIBROPLEX [Concomitant]
     Indication: WEST NILE VIRAL INFECTION
  13. FIBROPLEX [Concomitant]
     Indication: FIBROMYALGIA
  14. FIBROPLEX [Concomitant]
     Indication: FATIGUE
  15. MITOCHONDRIAL RESUSITATE [Concomitant]
     Indication: WEST NILE VIRAL INFECTION
  16. MITOCHONDRIAL RESUSITATE [Concomitant]
     Indication: FIBROMYALGIA
  17. MITOCHONDRIAL RESUSITATE [Concomitant]
     Indication: ASTHENIA
  18. EPA-DHA [Concomitant]
     Indication: WEST NILE VIRAL INFECTION
  19. EPA-DHA [Concomitant]
     Indication: FIBROMYALGIA
  20. VESSEL CARE [Concomitant]
     Indication: SPINAL DISORDER
  21. VESSEL CARE [Concomitant]
     Indication: BLOOD HOMOCYSTEINE
  22. CALCIUM WITH IPRIFLAVONE AND VITAMIN D [Concomitant]
     Indication: SPINAL DISORDER
  23. DOCUSATE SODIUM [Concomitant]
     Indication: FAECES HARD
  24. DOCUSATE SODIUM [Concomitant]
     Indication: SPINAL DISORDER
  25. CERALIN FORTE [Concomitant]
     Indication: SPINAL DISORDER
  26. KAPREX AL BALANCED IMMUNE FUNCTION [Concomitant]
     Indication: SPINAL DISORDER
  27. ALAPARS, NIACINAMIDE + NAC FOR HEALTHY PARS ACTIVITY [Concomitant]
     Indication: SPINAL DISORDER

REACTIONS (2)
  - AORTIC VALVE DISEASE MIXED [None]
  - RHINORRHOEA [None]
